FAERS Safety Report 25258772 (Version 1)
Quarter: 2025Q2

REPORT INFORMATION
  Report Type: Spontaneous
  Country: GB (occurrence: GB)
  Receive Date: 20250501
  Receipt Date: 20250501
  Transmission Date: 20250717
  Serious: Yes (Other)
  Sender: AUROBINDO
  Company Number: GB-MHRA-TPP27077808C10032237YC1744721936733

PATIENT
  Age: 69 Year
  Sex: Female
  Weight: 51 kg

DRUGS (4)
  1. FEXOFENADINE HYDROCHLORIDE [Suspect]
     Active Substance: FEXOFENADINE HYDROCHLORIDE
     Indication: Ill-defined disorder
     Dosage: 180 MILLIGRAM, ONCE A DAY
     Route: 065
     Dates: start: 20240528
  2. BECONASE AQ [Concomitant]
     Active Substance: BECLOMETHASONE DIPROPIONATE MONOHYDRATE
     Indication: Ill-defined disorder
     Route: 065
     Dates: start: 20240422
  3. ESTRIOL [Concomitant]
     Active Substance: ESTRIOL
     Indication: Ill-defined disorder
     Route: 065
     Dates: start: 20240424
  4. BEMPEDOIC ACID [Concomitant]
     Active Substance: BEMPEDOIC ACID
     Indication: Ill-defined disorder
     Route: 065
     Dates: start: 20241031

REACTIONS (4)
  - Abdominal pain [Recovered/Resolved]
  - Diarrhoea [Unknown]
  - Hypersensitivity [Unknown]
  - Dyspnoea [Unknown]
